FAERS Safety Report 8887251 (Version 5)
Quarter: 2014Q1

REPORT INFORMATION
  Report Type: Report from Study
  Country: BE (occurrence: BE)
  Receive Date: 20121105
  Receipt Date: 20140218
  Transmission Date: 20141002
  Serious: Yes (Hospitalization)
  Sender: FDA-Public Use
  Company Number: BE-PFIZER INC-2012271293

PATIENT
  Age: 39 Year
  Sex: Male
  Weight: 78 kg

DRUGS (3)
  1. PF-00547659 [Suspect]
     Indication: CROHN^S DISEASE
     Dosage: 75 MG, MONTHLY
     Route: 058
     Dates: start: 20120907
  2. MEDROL [Suspect]
     Indication: CROHN^S DISEASE
     Dosage: 16 MG, 1X/DAY
     Route: 048
     Dates: start: 20120911
  3. PANTOPRAZOL [Concomitant]
     Indication: DYSPEPSIA
     Dosage: 40 MG, 1X/DAY
     Route: 048

REACTIONS (2)
  - Wound dehiscence [Recovered/Resolved]
  - Hernia obstructive [Recovered/Resolved]
